FAERS Safety Report 11266185 (Version 1)
Quarter: 2015Q3

REPORT INFORMATION
  Report Type: Spontaneous
  Country: US (occurrence: None)
  Receive Date: 20150713
  Receipt Date: 20150713
  Transmission Date: 20151125
  Serious: No
  Sender: FDA-Public Use
  Company Number: None

PATIENT
  Age: 51 Year
  Sex: Female
  Weight: 102.06 kg

DRUGS (2)
  1. KINEVAC [Suspect]
     Active Substance: SINCALIDE
     Dosage: 2 MCG, IM, INFUSION?
     Dates: start: 20150615
  2. KINEVAC [Suspect]
     Active Substance: SINCALIDE
     Indication: HEPATOBILIARY SCAN
     Dosage: 2 MCG, IM, INFUSION?
     Dates: start: 20150615

REACTIONS (9)
  - White blood cell count decreased [None]
  - Platelet count decreased [None]
  - Dyspnoea [None]
  - Fatigue [None]
  - Post procedural complication [None]
  - Hiatus hernia [None]
  - Dizziness [None]
  - Asthenia [None]
  - Hyperhidrosis [None]

NARRATIVE: CASE EVENT DATE: 20150615
